FAERS Safety Report 8269387 (Version 4)
Quarter: 2014Q1

REPORT INFORMATION
  Report Type: Report from Study
  Country: JP (occurrence: JP)
  Receive Date: 20111130
  Receipt Date: 20140227
  Transmission Date: 20141002
  Serious: Yes (Death, Hospitalization, Other)
  Sender: FDA-Public Use
  Company Number: JP-BRISTOL-MYERS SQUIBB COMPANY-16251142

PATIENT
  Age: 49 Year
  Sex: Female

DRUGS (13)
  1. SPRYCEL [Suspect]
     Indication: CHRONIC MYELOID LEUKAEMIA
     Dosage: REDUCED TO 100MG/D?70MG 2/D:29AUG11-22NOV?50MG 2/D:10DEC11-12APR12?D^CED 22NOV11?RESUMD9DEC11
     Route: 048
     Dates: start: 20110829
  2. ALOSITOL [Concomitant]
     Dosage: TABS
     Route: 048
  3. GASTER D [Concomitant]
     Dosage: TABS
     Route: 048
     Dates: start: 20111214
  4. JUVELA [Concomitant]
     Route: 048
     Dates: start: 20111117
  5. METHYLCOBALAMIN [Concomitant]
     Dosage: TABS
     Route: 048
     Dates: start: 20111117
  6. MUCODYNE [Concomitant]
     Route: 048
     Dates: start: 20111118
  7. OXINORM [Concomitant]
     Route: 048
     Dates: start: 20111218
  8. RISPERDAL [Concomitant]
     Dosage: TABS
     Route: 048
     Dates: start: 20111214
  9. COMELIAN [Concomitant]
     Dosage: TABS
     Route: 048
     Dates: start: 20111215
  10. BAKTAR [Concomitant]
     Dosage: TABS
     Route: 048
     Dates: start: 20111215, end: 20120412
  11. MYCOSYST [Concomitant]
     Dosage: CAPS
     Route: 048
     Dates: start: 20111215
  12. FOSAMAC [Concomitant]
     Dosage: TABS
     Route: 048
     Dates: start: 20111215
  13. PREDNISOLONE [Concomitant]
     Dosage: 15DC11-18JN12:40MG/DY,19JN12-8FB12:35MG/DY,9FB-14FB12:30MG/DY,15FB-22FB12:25MG/DY,23FB-OG:20MG/DY
     Route: 048
     Dates: start: 20111215

REACTIONS (7)
  - Small cell carcinoma [Fatal]
  - Malignant neoplasm progression [Unknown]
  - Nephrotic syndrome [Recovering/Resolving]
  - Vomiting [Recovered/Resolved]
  - C-reactive protein increased [Recovered/Resolved]
  - Stem cell transplant [Unknown]
  - Diarrhoea [Recovering/Resolving]
